FAERS Safety Report 4684042-7 (Version None)
Quarter: 2005Q2

REPORT INFORMATION
  Report Type: 
  Country: None (occurrence: None)
  Receive Date: 20050602
  Receipt Date: 20050119
  Transmission Date: 20051028
  Serious: No
  Sender: FDA-Public Use
  Company Number: USA050188883

PATIENT
  Age: 49 Year
  Sex: Male

DRUGS (2)
  1. CYMBALTA [Suspect]
     Dosage: 20 MG
     Dates: start: 20050104, end: 20050118
  2. SUBOXONE [Concomitant]

REACTIONS (1)
  - FEELING ABNORMAL [None]
